FAERS Safety Report 11067613 (Version 1)
Quarter: 2015Q2

REPORT INFORMATION
  Report Type: Spontaneous
  Country: US (occurrence: None)
  Receive Date: 20150424
  Receipt Date: 20150424
  Transmission Date: 20150821
  Serious: No
  Sender: FDA-Public Use
  Company Number: None

PATIENT
  Age: 70 Year
  Sex: Female
  Weight: 55.34 kg

DRUGS (1)
  1. VALSARTAN. [Suspect]
     Active Substance: VALSARTAN
     Indication: HYPERTENSION
     Dosage: 1 TABLET ONCE BY MOUTH A DAY 1 TABLET A DAY FOR 4 DAYS
     Route: 048
     Dates: start: 20150321, end: 20150325

REACTIONS (2)
  - Rash [None]
  - Pruritus generalised [None]

NARRATIVE: CASE EVENT DATE: 20150322
